FAERS Safety Report 15311283 (Version 2)
Quarter: 2018Q3

REPORT INFORMATION
  Report Type: Report from Study
  Country: US (occurrence: US)
  Receive Date: 20180823
  Receipt Date: 20180906
  Transmission Date: 20181010
  Serious: Yes (Other)
  Sender: FDA-Public Use
  Company Number: US-PFIZER INC-2018334943

PATIENT
  Age: 52 Year
  Sex: Female

DRUGS (5)
  1. PIPERACILLIN/TAZOBACTAM [Concomitant]
     Active Substance: PIPERACILLIN SODIUM\TAZOBACTAM SODIUM
     Dosage: UNK
  2. VANCOMYCIN HYDROCHLORIDE. [Concomitant]
     Active Substance: VANCOMYCIN HYDROCHLORIDE
     Dosage: UNK
  3. METOCLOPRAMIDE HCL [Suspect]
     Active Substance: METOCLOPRAMIDE HYDROCHLORIDE
     Indication: VOMITING
     Dosage: UNK
  4. ONDANSETRON [Interacting]
     Active Substance: ONDANSETRON
     Indication: VOMITING
     Dosage: 4 MG, 3X/DAY
     Route: 060
  5. HYDROMORPHONE HYDROCHLORIDE. [Concomitant]
     Active Substance: HYDROMORPHONE HYDROCHLORIDE
     Dosage: UNK

REACTIONS (3)
  - Electrocardiogram T wave inversion [Unknown]
  - Drug interaction [Unknown]
  - Electrocardiogram QT prolonged [Unknown]
